FAERS Safety Report 10907796 (Version 2)
Quarter: 2015Q1

REPORT INFORMATION
  Report Type: Report from Study
  Country: US (occurrence: US)
  Receive Date: 20150312
  Receipt Date: 20150319
  Transmission Date: 20150721
  Serious: Yes (Hospitalization)
  Sender: FDA-Public Use
  Company Number: US-BAXTER-2015BAX012678

PATIENT
  Sex: Female
  Weight: 106.8 kg

DRUGS (4)
  1. GAMMAGARD LIQUID [Suspect]
     Active Substance: HUMAN IMMUNOGLOBULIN G
     Indication: IMMUNODEFICIENCY COMMON VARIABLE
     Route: 058
     Dates: start: 2010
  2. EMLA [Concomitant]
     Active Substance: LIDOCAINE\PRILOCAINE
     Indication: PREMEDICATION
     Route: 061
     Dates: start: 2011
  3. ZYTREC [Concomitant]
     Indication: PREMEDICATION
     Dosage: BEFORE INFUSION
     Route: 048
     Dates: start: 2010
  4. BENADRYL [Concomitant]
     Active Substance: DIPHENHYDRAMINE HYDROCHLORIDE
     Indication: PREMEDICATION
     Dosage: BEFORE INFUSION
     Route: 048
     Dates: start: 2010

REACTIONS (14)
  - Herpes simplex serology positive [Unknown]
  - Arthralgia [Recovering/Resolving]
  - Infusion site erythema [Recovering/Resolving]
  - Musculoskeletal stiffness [Recovering/Resolving]
  - Chills [Recovered/Resolved]
  - Vomiting [Recovered/Resolved]
  - Rash [Recovering/Resolving]
  - Cellulitis [Recovered/Resolved]
  - Skin burning sensation [Recovering/Resolving]
  - Decreased appetite [Recovered/Resolved]
  - Pruritus [Recovering/Resolving]
  - Joint stiffness [Unknown]
  - Fatigue [Unknown]
  - Migraine [Recovering/Resolving]

NARRATIVE: CASE EVENT DATE: 2010
